FAERS Safety Report 16288277 (Version 1)
Quarter: 2019Q2

REPORT INFORMATION
  Report Type: Spontaneous
  Country: CN (occurrence: CN)
  Receive Date: 20190508
  Receipt Date: 20190508
  Transmission Date: 20190711
  Serious: Yes (Other)
  Sender: FDA-Public Use
  Company Number: CN-BAXTER-2019BAX008959

PATIENT
  Age: 59 Year
  Sex: Male
  Weight: 58 kg

DRUGS (6)
  1. 0.9% SODIUM CHLORIDE INJECTION [Suspect]
     Active Substance: SODIUM CHLORIDE
     Indication: MEDICATION DILUTION
     Dosage: DOSAGE FORM: INJECTION. IV GTT ETOPOSIDE INJECTION 0.08 G, IV GTT VINCRISTINE FOR INJECTION 0.5 MG A
     Route: 041
     Dates: start: 20190401, end: 20190404
  2. 0.9% SODIUM CHLORIDE INJECTION [Suspect]
     Active Substance: SODIUM CHLORIDE
     Dosage: DOSAGE FORM: INJECTION , IV GTT CYCLOPHOSPHAMIDE FOR INJECTION 1200 MG DILUTED WITH IV GTT 0.9% SODI
     Route: 041
     Dates: start: 20190406, end: 20190406
  3. AIDASHENG [Suspect]
     Active Substance: EPIRUBICIN HYDROCHLORIDE
     Indication: LYMPHOMA
     Dosage: IV GTT ETOPOSIDE INJECTION 0.08 G, IV GTT VINCRISTINE FOR INJECTION 0.5 MG AND IV GTT EPIRUBICIN HYD
     Route: 041
     Dates: start: 20190401, end: 20190404
  4. ETOPOSIDE. [Suspect]
     Active Substance: ETOPOSIDE
     Indication: LYMPHOMA
     Dosage: IV GTT ETOPOSIDE INJECTION 0.08 G, IV GTT VINCRISTINE FOR INJECTION 0.5 MG AND IV GTT EPIRUBICIN HYD
     Route: 041
     Dates: start: 20190401, end: 20190404
  5. ENDOXAN [Suspect]
     Active Substance: CYCLOPHOSPHAMIDE
     Indication: LYMPHOMA
     Dosage: DOSAGE FORM: INJECTION, IV GTT CYCLOPHOSPHAMIDE FOR INJECTION 1200 MG DILUTED WITH IV GTT 0.9% SODIU
     Route: 041
     Dates: start: 20190406, end: 20190406
  6. VINCRISTINE SULFATE. [Suspect]
     Active Substance: VINCRISTINE SULFATE
     Indication: LYMPHOMA
     Dosage: IV GTT ETOPOSIDE INJECTION 0.08 G, IV GTT VINCRISTINE FOR INJECTION 0.5 MG AND IV GTT EPIRUBICIN HYD
     Route: 041
     Dates: start: 20190401, end: 20190404

REACTIONS (1)
  - Hepatic function abnormal [Recovered/Resolved]

NARRATIVE: CASE EVENT DATE: 20190406
